FAERS Safety Report 5510104-8 (Version None)
Quarter: 2007Q4

REPORT INFORMATION
  Report Type: 
  Country: None (occurrence: None)
  Receive Date: 20071108
  Receipt Date: 20071101
  Transmission Date: 20080405
  Serious: Yes (Hospitalization)
  Sender: FDA-Public Use
  Company Number: US-JNJFOC-20071101453

PATIENT
  Age: 75 Year
  Sex: Female

DRUGS (1)
  1. LEVAQUIN [Suspect]
     Indication: BRONCHITIS
     Dosage: INGESTED ONE TABLET ONLY
     Route: 048

REACTIONS (4)
  - CARDIAC ARREST [None]
  - RESPIRATORY DISTRESS [None]
  - SNEEZING [None]
  - WHEEZING [None]
